FAERS Safety Report 22614880 (Version 4)
Quarter: 2023Q4

REPORT INFORMATION
  Report Type: Spontaneous
  Country: CH (occurrence: CH)
  Receive Date: 20230619
  Receipt Date: 20231002
  Transmission Date: 20240110
  Serious: Yes (Other)
  Sender: FDA-Public Use
  Company Number: CH-BAYER-2023A081371

PATIENT
  Age: 22 Year
  Sex: Female
  Weight: 57 kg

DRUGS (1)
  1. KYLEENA [Suspect]
     Active Substance: LEVONORGESTREL
     Dosage: 17.5?G/DAY
     Route: 015
     Dates: start: 20221007, end: 20230606

REACTIONS (4)
  - Pregnancy with contraceptive device [Recovered/Resolved]
  - Abortion spontaneous [None]
  - Drug ineffective [None]
  - Contraindicated device used [None]

NARRATIVE: CASE EVENT DATE: 20230517
